FAERS Safety Report 18123474 (Version 6)
Quarter: 2021Q1

REPORT INFORMATION
  Report Type: Spontaneous
  Country: CA (occurrence: CA)
  Receive Date: 20200807
  Receipt Date: 20210324
  Transmission Date: 20210419
  Serious: Yes (Hospitalization, Congenital Anomaly, Other)
  Sender: FDA-Public Use
  Company Number: CA-GLAXOSMITHKLINE-CA2020AMR149217

PATIENT
  Age: 49 Year
  Sex: Female
  Weight: 113 kg

DRUGS (9)
  1. BENLYSTA [Suspect]
     Active Substance: BELIMUMAB
     Dosage: UNK UNK, Z, (10MG/KG IV EVERY 4 WEEKS)
  2. BENLYSTA [Suspect]
     Active Substance: BELIMUMAB
     Dosage: UNK UNK, Z (10MG/KG IV EVERY 4 WEEKS)
  3. BENLYSTA [Suspect]
     Active Substance: BELIMUMAB
     Dosage: UNK UNK, Z (10MG/KG IV EVERY 4 WEEKS)
  4. CLINDAMYCIN. [Suspect]
     Active Substance: CLINDAMYCIN
     Indication: PRODUCT USED FOR UNKNOWN INDICATION
     Dosage: UNK
  5. BENLYSTA [Suspect]
     Active Substance: BELIMUMAB
     Dosage: UNK UNK, Z (10MG/KG IV EVERY 4 WEEKS)
  6. BENLYSTA [Suspect]
     Active Substance: BELIMUMAB
     Indication: SYSTEMIC LUPUS ERYTHEMATOSUS
     Dosage: UNK UNK, Z (10MG/KG IV EVERY 4 WEEKS)
     Dates: start: 20160516
  7. PENICILLIN V POTASSIUM. [Suspect]
     Active Substance: PENICILLIN V POTASSIUM
     Indication: PRODUCT USED FOR UNKNOWN INDICATION
     Dosage: UNK
  8. AMOXYL [Suspect]
     Active Substance: AMOXICILLIN
     Indication: PRODUCT USED FOR UNKNOWN INDICATION
     Dosage: UNK
  9. PLAQUENIL [Suspect]
     Active Substance: HYDROXYCHLOROQUINE SULFATE
     Indication: SYSTEMIC LUPUS ERYTHEMATOSUS
     Dosage: UNK

REACTIONS (15)
  - Coronary artery occlusion [Recovered/Resolved]
  - Fatigue [Recovering/Resolving]
  - Drug hypersensitivity [Not Recovered/Not Resolved]
  - Condition aggravated [Unknown]
  - Coagulation factor increased [Recovered/Resolved]
  - Haematemesis [Recovered/Resolved]
  - Pericardial effusion [Recovered/Resolved]
  - Toothache [Recovered/Resolved with Sequelae]
  - Intervertebral disc protrusion [Unknown]
  - Chest pain [Recovered/Resolved]
  - Pericarditis [Recovered/Resolved]
  - Pleural effusion [Recovered/Resolved]
  - Tooth extraction [Unknown]
  - Angina pectoris [Recovered/Resolved]
  - Heart valve incompetence [Not Recovered/Not Resolved]

NARRATIVE: CASE EVENT DATE: 20210205
